FAERS Safety Report 4451525-4 (Version None)
Quarter: 2004Q3

REPORT INFORMATION
  Report Type: 
  Country: None (occurrence: None)
  Receive Date: 20040915
  Receipt Date: 20040903
  Transmission Date: 20050211
  Serious: Yes (Other)
  Sender: FDA-Public Use
  Company Number: 2004232200US

PATIENT
  Age: 27 Year
  Sex: Female
  Weight: 57.6 kg

DRUGS (2)
  1. DEPO-PROVERA [Suspect]
     Indication: CONTRACEPTION
     Dosage: FIRST INJECTION; LAST INJECTION
     Dates: start: 20011101, end: 20011101
  2. DEPO-PROVERA [Suspect]
     Indication: CONTRACEPTION
     Dosage: FIRST INJECTION; LAST INJECTION
     Dates: start: 20031101, end: 20031101

REACTIONS (2)
  - METRORRHAGIA [None]
  - POLYCYSTIC OVARIES [None]
